FAERS Safety Report 24375285 (Version 2)
Quarter: 2024Q4

REPORT INFORMATION
  Report Type: Spontaneous
  Country: JP (occurrence: JP)
  Receive Date: 20240928
  Receipt Date: 20241021
  Transmission Date: 20250114
  Serious: Yes (Hospitalization)
  Sender: AMGEN
  Company Number: JP-AMGEN-JPNSP2024189924

PATIENT
  Age: 43 Year
  Sex: Female

DRUGS (3)
  1. REPATHA [Suspect]
     Active Substance: EVOLOCUMAB
     Indication: Dyslipidaemia
     Dosage: 140 MILLIGRAM, Q2WK
     Route: 058
     Dates: start: 201610
  2. EZETIMIBE [Concomitant]
     Active Substance: EZETIMIBE
     Indication: Dyslipidaemia
     Dosage: 10 MILLIGRAM
     Dates: start: 2012
  3. ROSUVASTATIN [Concomitant]
     Active Substance: ROSUVASTATIN
     Indication: Dyslipidaemia
     Dosage: 20 MILLIGRAM
     Dates: start: 2012

REACTIONS (1)
  - Angina unstable [Recovered/Resolved]

NARRATIVE: CASE EVENT DATE: 20161201
